FAERS Safety Report 8910633 (Version 1)
Quarter: 2012Q4

REPORT INFORMATION
  Report Type: Spontaneous
  Country: GB (occurrence: None)
  Receive Date: 20121107
  Receipt Date: 20121107
  Transmission Date: 20130627
  Serious: Yes (Other)
  Sender: FDA-Public Use
  Company Number: AUR-APL-2012-04764

PATIENT
  Age: 65 Year
  Sex: Female

DRUGS (2)
  1. TERBINAFINE [Suspect]
     Indication: TINEA CORPORIS
     Route: 048
  2. MICONAZOLE [Suspect]
     Indication: TINEA CORPORIS
     Route: 061

REACTIONS (2)
  - Systemic lupus erythematosus [None]
  - Cutaneous lupus erythematosus [None]
